FAERS Safety Report 6152167-5 (Version None)
Quarter: 2009Q2

REPORT INFORMATION
  Report Type: 
  Country: None (occurrence: None)
  Receive Date: 20090409
  Receipt Date: 20090409
  Transmission Date: 20091009
  Serious: Yes (Other)
  Sender: FDA-Public Use
  Company Number: None

PATIENT
  Sex: Male
  Weight: 12.2471 kg

DRUGS (2)
  1. SINGULAIR [Suspect]
     Indication: ASTHMA
     Dosage: 4MG 1 DAILY PO
     Route: 048
     Dates: start: 20070122, end: 20090212
  2. SINGULAIR [Suspect]
     Indication: MULTIPLE ALLERGIES
     Dosage: 4MG 1 DAILY PO
     Route: 048
     Dates: start: 20070122, end: 20090212

REACTIONS (3)
  - ANXIETY [None]
  - GASTRIC DISORDER [None]
  - IRRITABILITY [None]
